FAERS Safety Report 4936906-4 (Version None)
Quarter: 2006Q1

REPORT INFORMATION
  Report Type: 
  Country: None (occurrence: None)
  Receive Date: 20060307
  Receipt Date: 20050930
  Transmission Date: 20060701
  Serious: Yes (Hospitalization, Disabling)
  Sender: FDA-Public Use
  Company Number: US-MERCK-0510USA01183

PATIENT
  Age: 56 Year
  Sex: Male
  Weight: 114 kg

DRUGS (5)
  1. VIOXX [Suspect]
     Indication: ARTHRITIS
     Route: 048
     Dates: end: 20030901
  2. VIOXX [Suspect]
     Route: 048
     Dates: end: 20030901
  3. VIOXX [Suspect]
     Indication: ARTHRALGIA
     Route: 048
     Dates: end: 20030901
  4. VIOXX [Suspect]
     Route: 048
     Dates: end: 20030901
  5. TYLENOL (CAPLET) [Concomitant]
     Route: 065

REACTIONS (2)
  - CORONARY ARTERY DISEASE [None]
  - PRESCRIBED OVERDOSE [None]
